FAERS Safety Report 7994113-5 (Version None)
Quarter: 2011Q4

REPORT INFORMATION
  Report Type: 
  Country: None (occurrence: None)
  Receive Date: 20111123
  Receipt Date: 20110929
  Transmission Date: 20120403
  Serious: No
  Sender: FDA-Public Use
  Company Number: 337121

PATIENT
  Age: 62 Year
  Sex: Female

DRUGS (3)
  1. FISH OIL (FISH OIL) [Concomitant]
  2. GINKGO BILOBA (GINKGO BILOBA) [Concomitant]
  3. VICTOZA [Suspect]
     Indication: PRODUCT USED FOR UNKNOWN INDICATION
     Dosage: , SUBCUTANEOUS
     Route: 058

REACTIONS (1)
  - RASH MACULAR [None]
